FAERS Safety Report 26119642 (Version 2)
Quarter: 2025Q4

REPORT INFORMATION
  Report Type: Report from Study
  Country: EU (occurrence: EU)
  Receive Date: 20251204
  Receipt Date: 20251222
  Transmission Date: 20260117
  Serious: Yes (Other)
  Sender: ABBVIE
  Company Number: EU-ABBVIE-6573898

PATIENT
  Age: 77 Year
  Sex: Male

DRUGS (2)
  1. FOSCARBIDOPA\FOSLEVODOPA [Suspect]
     Active Substance: FOSCARBIDOPA\FOSLEVODOPA
     Indication: Parkinson^s disease
     Dosage: 240MG/ML OF FOSLEVODOPA + 12 MG/ML OF FOSCARBIDOPA, ?INITIAL DOSES: LOADING DOSE 0.90CC, BASE DOS...
     Route: 058
     Dates: start: 20241113, end: 2025
  2. FOSCARBIDOPA\FOSLEVODOPA [Suspect]
     Active Substance: FOSCARBIDOPA\FOSLEVODOPA
     Dosage: 240MG/ML OF FOSLEVODOPA + 12 MG/ML OF FOSCARBIDOPA,?DOSES: LOADING 0.90ML; HIGH 0.44ML/H, BASE 0....
     Route: 058
     Dates: start: 2025

REACTIONS (3)
  - Malignant melanoma [Not Recovered/Not Resolved]
  - Basal cell carcinoma [Not Recovered/Not Resolved]
  - Squamous cell carcinoma of skin [Unknown]

NARRATIVE: CASE EVENT DATE: 20250101
